FAERS Safety Report 23442168 (Version 1)
Quarter: 2024Q1

REPORT INFORMATION
  Report Type: Spontaneous
  Country: US (occurrence: US)
  Receive Date: 20240125
  Receipt Date: 20240125
  Transmission Date: 20240410
  Serious: Yes (Other)
  Sender: FDA-Public Use
  Company Number: US-MYLANLABS-2024M1006325

PATIENT
  Age: 78 Year
  Sex: Female

DRUGS (5)
  1. LEVOTHYROXINE [Interacting]
     Active Substance: LEVOTHYROXINE\LEVOTHYROXINE SODIUM
     Indication: Thyroid hormone replacement therapy
     Dosage: 75 MICROGRAM, QD; 75-88 ?G
     Route: 065
  2. LEVOTHYROXINE [Interacting]
     Active Substance: LEVOTHYROXINE\LEVOTHYROXINE SODIUM
     Dosage: 88 MICROGRAM, QD; 75-88 ?G
     Route: 065
  3. LEVOTHYROXINE [Interacting]
     Active Substance: LEVOTHYROXINE\LEVOTHYROXINE SODIUM
     Dosage: 75 MICROGRAM, QD
     Route: 065
     Dates: start: 201404
  4. RIFAMPIN [Interacting]
     Active Substance: RIFAMPIN
     Indication: Mycobacterium avium complex infection
     Dosage: UNK
     Route: 065
     Dates: start: 201208, end: 201304
  5. RIFAMPIN [Interacting]
     Active Substance: RIFAMPIN
     Indication: Pneumonia bacterial

REACTIONS (3)
  - Hypothyroidism [Recovered/Resolved]
  - Drug level decreased [Recovered/Resolved]
  - Labelled drug-drug interaction medication error [Recovered/Resolved]
